FAERS Safety Report 7170785-2 (Version None)
Quarter: 2010Q4

REPORT INFORMATION
  Report Type: 
  Country: None (occurrence: None)
  Receive Date: 20101217
  Receipt Date: 20101208
  Transmission Date: 20110411
  Serious: Yes (Other)
  Sender: FDA-Public Use
  Company Number: US-JNJFOC-20101000702

PATIENT
  Sex: Female
  Weight: 116.12 kg

DRUGS (27)
  1. REMICADE [Suspect]
     Indication: RHEUMATOID ARTHRITIS
     Route: 042
  2. PILOCARPINE [Concomitant]
     Indication: DRY MOUTH
  3. PLAQUENIL [Concomitant]
     Route: 048
  4. FOLIC ACID [Concomitant]
     Indication: NUTRITIONAL SUPPORT
     Route: 048
  5. METHOTREXATE [Concomitant]
     Indication: RHEUMATOID ARTHRITIS
     Route: 048
  6. LYRICA [Concomitant]
  7. DILAUDID [Concomitant]
     Indication: PAIN
     Route: 048
  8. XANAX [Concomitant]
     Route: 048
  9. CYMBALTA [Concomitant]
  10. MS CONTIN [Concomitant]
     Indication: PAIN
     Route: 048
  11. VALIUM [Concomitant]
  12. SYNTHROID [Concomitant]
     Route: 048
  13. IMITREX [Concomitant]
     Indication: MIGRAINE
  14. HUMULIN N [Concomitant]
     Indication: TYPE 2 DIABETES MELLITUS
     Dosage: 36 UNITS
  15. HUMULIN N [Concomitant]
     Dosage: 13 UNITS
  16. VIT D [Concomitant]
  17. CARVEDILOL [Concomitant]
  18. CRESTOR [Concomitant]
     Indication: HYPERCHOLESTEROLAEMIA
     Route: 048
  19. NITROGLYCERIN [Concomitant]
  20. ENABLEX [Concomitant]
     Indication: HYPERTONIC BLADDER
  21. SINGULAIR [Concomitant]
     Indication: ASTHMA
  22. INHALERS NOS [Concomitant]
  23. LANSOPRAZOLE [Concomitant]
  24. METANX [Concomitant]
  25. COLCHICINE [Concomitant]
     Indication: GOUT
  26. COUMADIN [Concomitant]
  27. SYMBICORT [Concomitant]
     Indication: EMPHYSEMA

REACTIONS (11)
  - ANGINA PECTORIS [None]
  - BODY TINEA [None]
  - BRONCHITIS [None]
  - CHRONIC OBSTRUCTIVE PULMONARY DISEASE [None]
  - DYSPNOEA [None]
  - HERPES VIRUS INFECTION [None]
  - ORAL CANDIDIASIS [None]
  - SINUSITIS [None]
  - URINARY TRACT INFECTION [None]
  - VAGINITIS BACTERIAL [None]
  - VULVOVAGINAL CANDIDIASIS [None]
